FAERS Safety Report 22069534 (Version 1)
Quarter: 2023Q1

REPORT INFORMATION
  Report Type: Spontaneous
  Country: US (occurrence: None)
  Receive Date: 20230306
  Receipt Date: 20230306
  Transmission Date: 20230418
  Serious: Yes (Hospitalization)
  Sender: FDA-Public Use
  Company Number: None

PATIENT
  Age: 76 Year
  Sex: Female
  Weight: 78.02 kg

DRUGS (1)
  1. KETOROLAC [Suspect]
     Active Substance: KETOROLAC TROMETHAMINE
     Indication: Pain
     Dosage: 15 MG   X1 AND REPEAT DOSE  INTRAVENOUS  ?
     Route: 042
     Dates: start: 20230225, end: 20230225

REACTIONS (7)
  - Dyspnoea [None]
  - Flushing [None]
  - Oxygen saturation decreased [None]
  - Wheezing [None]
  - Hypotension [None]
  - Therapeutic product effect increased [None]
  - Asthma [None]

NARRATIVE: CASE EVENT DATE: 20230225
